FAERS Safety Report 4470188-5 (Version None)
Quarter: 2004Q3

REPORT INFORMATION
  Report Type: 
  Country: None (occurrence: None)
  Receive Date: 20040910
  Receipt Date: 20040715
  Transmission Date: 20050211
  Serious: No
  Sender: FDA-Public Use
  Company Number: 2004-00213

PATIENT
  Age: 60 Year
  Sex: Female

DRUGS (1)
  1. VELCADE [Suspect]
     Indication: MULTIPLE MYELOMA
     Dosage: IV BOLUS
     Route: 040
     Dates: start: 20040101

REACTIONS (6)
  - ASTHENIA [None]
  - FEELING HOT [None]
  - HYPERAESTHESIA [None]
  - INTERVERTEBRAL DISC DISPLACEMENT [None]
  - PAIN IN EXTREMITY [None]
  - PARAESTHESIA [None]
